FAERS Safety Report 16489059 (Version 4)
Quarter: 2019Q3

REPORT INFORMATION
  Report Type: Spontaneous
  Country: US (occurrence: US)
  Receive Date: 20190628
  Receipt Date: 20190729
  Transmission Date: 20191004
  Serious: Yes (Other)
  Sender: FDA-Public Use
  Company Number: US-GLAXOSMITHKLINE-US2019114220

PATIENT
  Age: 48 Year
  Sex: Female

DRUGS (6)
  1. BENLYSTA [Suspect]
     Active Substance: BELIMUMAB
     Indication: SYSTEMIC LUPUS ERYTHEMATOSUS
  2. PLAQUENIL [Concomitant]
     Active Substance: HYDROXYCHLOROQUINE SULFATE
     Indication: PRODUCT USED FOR UNKNOWN INDICATION
     Dosage: UNK
     Route: 065
  3. PREDNISONE. [Concomitant]
     Active Substance: PREDNISONE
     Indication: PRODUCT USED FOR UNKNOWN INDICATION
     Dosage: UNK
     Route: 065
  4. BENLYSTA [Suspect]
     Active Substance: BELIMUMAB
     Indication: CUTANEOUS LUPUS ERYTHEMATOSUS
     Dosage: UNK
     Route: 058
  5. METHOTREXATE. [Concomitant]
     Active Substance: METHOTREXATE
     Indication: PRODUCT USED FOR UNKNOWN INDICATION
     Dosage: UNK
     Route: 065
  6. CELLCEPT [Concomitant]
     Active Substance: MYCOPHENOLATE MOFETIL\MYCOPHENOLATE MOFETIL HYDROCHLORIDE
     Indication: PRODUCT USED FOR UNKNOWN INDICATION
     Dosage: UNK
     Route: 065

REACTIONS (18)
  - Swelling face [Not Recovered/Not Resolved]
  - Cough [Unknown]
  - Dizziness [Recovered/Resolved]
  - Joint swelling [Not Recovered/Not Resolved]
  - Headache [Unknown]
  - Biopsy skin [Unknown]
  - Visual field defect [Unknown]
  - Rash erythematous [Unknown]
  - Retinal infarction [Unknown]
  - Muscle spasms [Not Recovered/Not Resolved]
  - Rash papular [Not Recovered/Not Resolved]
  - Feeling abnormal [Recovered/Resolved]
  - Diarrhoea [Not Recovered/Not Resolved]
  - Systemic lupus erythematosus [Unknown]
  - Rash [Not Recovered/Not Resolved]
  - Nausea [Recovered/Resolved]
  - Migraine [Unknown]
  - Adverse drug reaction [Unknown]

NARRATIVE: CASE EVENT DATE: 2019
